FAERS Safety Report 5729923-8 (Version None)
Quarter: 2008Q2

REPORT INFORMATION
  Report Type: 
  Country: None (occurrence: None)
  Receive Date: 20080502
  Receipt Date: 20080425
  Transmission Date: 20081010
  Serious: Yes (Hospitalization)
  Sender: FDA-Public Use
  Company Number: 2008SP004625

PATIENT
  Age: 44 Year
  Sex: Female

DRUGS (2)
  1. PEG-INTRON [Suspect]
     Indication: HEPATITIS C
     Dosage: ; SC
     Route: 058
     Dates: start: 20080229
  2. RIBAVIRIN [Suspect]
     Indication: HEPATITIS C
     Dosage: ; PO
     Route: 048
     Dates: start: 20080229

REACTIONS (10)
  - ABDOMINAL PAIN UPPER [None]
  - BRONCHITIS [None]
  - COUGH [None]
  - DECREASED APPETITE [None]
  - GASTROENTERITIS VIRAL [None]
  - HAEMORRHAGE [None]
  - PAINFUL DEFAECATION [None]
  - RECTAL FISSURE [None]
  - SINUSITIS [None]
  - WHITE BLOOD CELL COUNT DECREASED [None]
